FAERS Safety Report 6896926-X (Version None)
Quarter: 2010Q3

REPORT INFORMATION
  Report Type: 
  Country: None (occurrence: None)
  Receive Date: 20100729
  Receipt Date: 20100720
  Transmission Date: 20110219
  Serious: Yes (Death, Hospitalization)
  Sender: FDA-Public Use
  Company Number: IDA-00383

PATIENT
  Sex: Female

DRUGS (1)
  1. INDERAL [Suspect]
     Dosage: 4.5 MG TID ORAL
     Route: 048

REACTIONS (10)
  - APNOEA [None]
  - CRYING [None]
  - DYSPHAGIA [None]
  - DYSPNOEA [None]
  - HYPERHIDROSIS [None]
  - HYPOTONIA [None]
  - INTRA-ABDOMINAL PRESSURE INCREASED [None]
  - LOSS OF CONSCIOUSNESS [None]
  - OBSTRUCTIVE AIRWAYS DISORDER [None]
  - PALLOR [None]
